FAERS Safety Report 6313543-0 (Version None)
Quarter: 2009Q3

REPORT INFORMATION
  Report Type: 
  Country: None (occurrence: None)
  Receive Date: 20090818
  Receipt Date: 20090710
  Transmission Date: 20100115
  Serious: No
  Sender: FDA-Public Use
  Company Number: US-BAYER-200929045NA

PATIENT
  Age: 46 Year
  Sex: Male
  Weight: 88 kg

DRUGS (1)
  1. ULTRAVIST PHARMACY BULK PACKAGE 370 [Suspect]
     Indication: COMPUTERISED TOMOGRAM ABDOMEN
     Dosage: AS USED: 80 ML  UNIT DOSE: 500 ML
     Route: 042
     Dates: start: 20090710, end: 20090710

REACTIONS (1)
  - PRURITUS GENERALISED [None]
